FAERS Safety Report 8145343-3 (Version None)
Quarter: 2012Q1

REPORT INFORMATION
  Report Type: 
  Country: None (occurrence: None)
  Receive Date: 20120217
  Receipt Date: 20120216
  Transmission Date: 20120608
  Serious: No
  Sender: FDA-Public Use
  Company Number: US-TEVA-321838USA

PATIENT
  Sex: Female
  Weight: 99.88 kg

DRUGS (2)
  1. PLAN B ONE-STEP [Suspect]
     Indication: POST COITAL CONTRACEPTION
     Dosage: 1.5 MILLIGRAM;
     Route: 048
     Dates: start: 20111226, end: 20111226
  2. PLAN B ONE-STEP [Suspect]
     Dosage: 1.5 MILLIGRAM;
     Route: 048
     Dates: start: 20120121, end: 20120121

REACTIONS (4)
  - VAGINAL HAEMORRHAGE [None]
  - DRUG INEFFECTIVE [None]
  - MENSTRUATION DELAYED [None]
  - PREGNANCY AFTER POST COITAL CONTRACEPTION [None]
